FAERS Safety Report 9405540 (Version 1)
Quarter: 2013Q3

REPORT INFORMATION
  Report Type: Report from Study
  Country: DE (occurrence: DE)
  Receive Date: 20130717
  Receipt Date: 20130717
  Transmission Date: 20140515
  Serious: Yes (Other)
  Sender: FDA-Public Use
  Company Number: DE-BRISTOL-MYERS SQUIBB COMPANY-19110451

PATIENT
  Age: 78 Year
  Sex: Female

DRUGS (1)
  1. DASATINIB [Suspect]
     Indication: CHRONIC MYELOID LEUKAEMIA
     Dosage: 1DF: 100 UNITS NOS

REACTIONS (5)
  - Pulmonary hypertension [Unknown]
  - Electrocardiogram QT prolonged [Unknown]
  - Cardiac disorder [Unknown]
  - Pleural effusion [Unknown]
  - Fluid retention [Unknown]
